FAERS Safety Report 18139079 (Version 2)
Quarter: 2020Q3

REPORT INFORMATION
  Report Type: Spontaneous
  Country: AR (occurrence: AR)
  Receive Date: 20200812
  Receipt Date: 20200924
  Transmission Date: 20201103
  Serious: Yes (Other)
  Sender: FDA-Public Use
  Company Number: NVSC2020AR050031

PATIENT
  Age: 31 Year
  Sex: Male

DRUGS (1)
  1. COSENTYX [Suspect]
     Active Substance: SECUKINUMAB
     Indication: PSORIASIS
     Dosage: UNK UNK, UNKNOWN (2 YEARS AGO)
     Route: 065

REACTIONS (4)
  - Lymphadenopathy [Unknown]
  - Tuberculosis [Unknown]
  - Lymphadenopathy mediastinal [Unknown]
  - Fungal infection [Unknown]
